FAERS Safety Report 7002410-5 (Version None)
Quarter: 2010Q3

REPORT INFORMATION
  Report Type: 
  Country: None (occurrence: None)
  Receive Date: 20100920
  Receipt Date: 20100506
  Transmission Date: 20110219
  Serious: Yes (Disabling)
  Sender: FDA-Public Use
  Company Number: US-ASTRAZENECA-2009SE26425

PATIENT
  Age: 13175 Day
  Sex: Female
  Weight: 72.6 kg

DRUGS (4)
  1. SEROQUEL [Suspect]
     Indication: BIPOLAR DISORDER
     Route: 048
     Dates: start: 20060301, end: 20100401
  2. SEROQUEL [Suspect]
     Route: 048
  3. LITHIUM [Suspect]
     Indication: BIPOLAR DISORDER
     Route: 065
     Dates: start: 20070901, end: 20100401
  4. LAMICTAL [Suspect]
     Route: 065

REACTIONS (4)
  - INSOMNIA [None]
  - ROSACEA [None]
  - TINNITUS [None]
  - WITHDRAWAL SYNDROME [None]
